FAERS Safety Report 17042865 (Version 1)
Quarter: 2019Q4

REPORT INFORMATION
  Report Type: Spontaneous
  Country: US (occurrence: US)
  Receive Date: 20191115
  Receipt Date: 20191115
  Transmission Date: 20200122
  Serious: No
  Sender: FDA-Public Use
  Company Number: None

PATIENT
  Age: 57 Year
  Sex: Male
  Weight: 74.25 kg

DRUGS (4)
  1. 81 MG ASPIRIN [Concomitant]
     Active Substance: ASPIRIN
  2. PRASUGREL. [Concomitant]
     Active Substance: PRASUGREL
  3. ROSUVASTATIN 20MG TABLETS [Suspect]
     Active Substance: ROSUVASTATIN
     Indication: BLOOD CHOLESTEROL INCREASED
     Dosage: ?          QUANTITY:1 TABLET(S);?
     Route: 048
     Dates: start: 20190205, end: 20190308
  4. LISINOPRIL. [Concomitant]
     Active Substance: LISINOPRIL

REACTIONS (5)
  - Insomnia [None]
  - Injury [None]
  - Tinnitus [None]
  - Muscle rupture [None]
  - Internal haemorrhage [None]

NARRATIVE: CASE EVENT DATE: 20190222
